FAERS Safety Report 17950539 (Version 1)
Quarter: 2020Q2

REPORT INFORMATION
  Report Type: Report from Study
  Country: IT (occurrence: IT)
  Receive Date: 20200626
  Receipt Date: 20200626
  Transmission Date: 20200714
  Serious: Yes (Other)
  Sender: FDA-Public Use
  Company Number: IT-AMGEN-ITANI2020020402

PATIENT
  Age: 64 Year
  Sex: Male
  Weight: 68 kg

DRUGS (7)
  1. PANITUMUMAB [Suspect]
     Active Substance: PANITUMUMAB
     Dosage: 408 MILLIGRAM, Q2WK
     Route: 042
     Dates: end: 20191204
  2. PANITUMUMAB [Suspect]
     Active Substance: PANITUMUMAB
     Dosage: 326 MILLIGRAM, Q2WK
     Route: 042
     Dates: start: 20200108, end: 20200206
  3. PANITUMUMAB [Suspect]
     Active Substance: PANITUMUMAB
     Indication: COLORECTAL CANCER METASTATIC
     Dosage: 408 MILLIGRAM, Q2WK
     Route: 042
     Dates: start: 20191114
  4. PANITUMUMAB [Suspect]
     Active Substance: PANITUMUMAB
     Dosage: 408 MILLIGRAM, Q2WK
     Route: 042
     Dates: end: 20191219
  5. DEXAMETHASONE. [Concomitant]
     Active Substance: DEXAMETHASONE
     Indication: PREMEDICATION
     Dosage: 4 MILLIGRAM, AS NECESSARY
     Route: 030
     Dates: start: 20191116
  6. PANITUMUMAB [Suspect]
     Active Substance: PANITUMUMAB
     Dosage: 326 MILLIGRAM, Q2WK
     Route: 042
  7. PLASIL [METOCLOPRAMIDE] [Concomitant]
     Indication: PREMEDICATION
     Dosage: 10 MILLIGRAM, AS NECESSARY
     Route: 048
     Dates: start: 20191116

REACTIONS (5)
  - Pruritus [Recovered/Resolved]
  - Leukopenia [Recovered/Resolved]
  - Glossitis [Recovered/Resolved]
  - Nausea [Recovered/Resolved]
  - Pruritus [Recovered/Resolved]

NARRATIVE: CASE EVENT DATE: 20191203
